FAERS Safety Report 12066988 (Version 2)
Quarter: 2016Q1

REPORT INFORMATION
  Report Type: Other
  Country: PL (occurrence: PL)
  Receive Date: 20160211
  Receipt Date: 20160301
  Transmission Date: 20160526
  Serious: Yes (Hospitalization)
  Sender: FDA-Public Use
  Company Number: PL-EMD SERONO-8059540

PATIENT
  Age: 13 Year
  Sex: Female

DRUGS (10)
  1. ACTRAPID [Concomitant]
     Active Substance: INSULIN HUMAN
     Indication: TYPE 1 DIABETES MELLITUS
  2. NOVORAPID [Concomitant]
     Active Substance: INSULIN ASPART
     Indication: TYPE 1 DIABETES MELLITUS
     Dosage: 27 U/D CORRESPONDING TO APPROXIMATELY 0.8 U/KG/D.
  3. ESTRADIOL. [Concomitant]
     Active Substance: ESTRADIOL
     Indication: PRODUCT USED FOR UNKNOWN INDICATION
  4. MIXTARD                            /00806401/ [Concomitant]
     Indication: TYPE 1 DIABETES MELLITUS
     Dosage: STRENGTH : 30 (UNITS UNSPECIFIED)
  5. ESTRADIOL. [Concomitant]
     Active Substance: ESTRADIOL
  6. RECOMBINANT HUMAN GROWTH HORMONE (RHGH) [Suspect]
     Active Substance: SOMATROPIN
     Indication: TURNER^S SYNDROME
  7. DYDROGESTERONE [Concomitant]
     Active Substance: DYDROGESTERONE
     Indication: PRODUCT USED FOR UNKNOWN INDICATION
  8. RECOMBINANT HUMAN GROWTH HORMONE (RHGH) [Suspect]
     Active Substance: SOMATROPIN
     Dosage: 0.033 MG/KG PER UNIT BODY WEIGHT (B.W./D)
  9. L-THYROXINE                        /00068001/ [Concomitant]
     Active Substance: LEVOTHYROXINE
     Indication: BLOOD THYROID STIMULATING HORMONE INCREASED
  10. NOVOMIX [Concomitant]
     Active Substance: INSULIN ASPART
     Indication: TYPE 1 DIABETES MELLITUS
     Dosage: STRENGTH - 30 (UNITS UNSPECIFIED) ,27 U/D CORRESPONDING TO APPROXIMATELY 0.8 U/KG/D.

REACTIONS (7)
  - Oesophagitis [Unknown]
  - Glycosylated haemoglobin increased [Unknown]
  - Ketonuria [Recovered/Resolved]
  - Hyperglycaemia [Recovered/Resolved]
  - Hypertension [Unknown]
  - Therapeutic response decreased [Unknown]
  - Helicobacter gastritis [Unknown]
